FAERS Safety Report 4426636-X (Version None)
Quarter: 2004Q3

REPORT INFORMATION
  Report Type: 
  Country: None (occurrence: None)
  Receive Date: 20040811
  Receipt Date: 20040730
  Transmission Date: 20050211
  Serious: No
  Sender: FDA-Public Use
  Company Number: 2004-116100-NL

PATIENT
  Age: 65 Year
  Sex: Female

DRUGS (5)
  1. ZEMURON [Suspect]
     Indication: HYPOTONIA
     Dosage: 20 MG DAILY
     Dates: start: 20040426, end: 20040426
  2. SUCCINYLCHOLINE [Suspect]
     Indication: INTUBATION
     Dosage: 40 MG DAILY
     Dates: start: 20040426, end: 20040426
  3. FENTANYL [Concomitant]
  4. SEVOFLURANE [Concomitant]
  5. OXYGEN [Concomitant]

REACTIONS (6)
  - BRONCHOSPASM [None]
  - CARDIAC FAILURE CONGESTIVE [None]
  - ENDOTRACHEAL INTUBATION COMPLICATION [None]
  - MUSCLE TWITCHING [None]
  - RESPIRATORY DISTRESS [None]
  - WHEEZING [None]
